FAERS Safety Report 11078702 (Version 2)
Quarter: 2015Q2

REPORT INFORMATION
  Report Type: Spontaneous
  Country: US (occurrence: None)
  Receive Date: 20150428
  Receipt Date: 20150601
  Transmission Date: 20150821
  Serious: Yes (Other)
  Sender: FDA-Public Use
  Company Number: 2014041363

PATIENT

DRUGS (1)
  1. BEVACIZUMAB [Suspect]
     Active Substance: BEVACIZUMAB
     Indication: PRODUCT USED FOR UNKNOWN INDICATION
     Dosage: 1.25 MG X1; INTRAVITREAL
     Route: 043
     Dates: start: 20150324

REACTIONS (1)
  - Non-infectious endophthalmitis [None]

NARRATIVE: CASE EVENT DATE: 20150324
